FAERS Safety Report 12183740 (Version 1)
Quarter: 2016Q1

REPORT INFORMATION
  Report Type: Spontaneous
  Country: US (occurrence: None)
  Receive Date: 20160315
  Receipt Date: 20160315
  Transmission Date: 20160526
  Serious: Yes (Other)
  Sender: FDA-Public Use
  Company Number: None

PATIENT
  Age: 47 Year
  Sex: Female
  Weight: 123.83 kg

DRUGS (22)
  1. ABACAVIR-DOLUTEGRAVIR-LAMIVUDINE (TRIUMEQ) [Concomitant]
  2. ACETAMINOPHEN (ACETAMINOPHEN) [Concomitant]
     Active Substance: ACETAMINOPHEN
  3. LISINOPRIL (LISINOPRIL) [Concomitant]
     Active Substance: LISINOPRIL
  4. POTASSIUM CHLORIDE. [Concomitant]
     Active Substance: POTASSIUM CHLORIDE
  5. TRIUMEQ [Suspect]
     Active Substance: ABACAVIR SULFATE\DOLUTEGRAVIR SODIUM\LAMIVUDINE
     Indication: HIV INFECTION
     Route: 048
     Dates: start: 20160209, end: 20160222
  6. FUROSEMIDE (FUROSEMIDE) [Concomitant]
     Active Substance: FUROSEMIDE
  7. ISOSORBIDE MONINITRATE (ISOSORBIDE MONONITRATE) [Concomitant]
  8. METOPROLOL TARTRATE. [Concomitant]
     Active Substance: METOPROLOL TARTRATE
  9. SPIRONOLACTONE (SPIRONOLACTONE) [Concomitant]
     Active Substance: SPIRONOLACTONE
  10. WARFARIN (WARFARIN) [Concomitant]
     Active Substance: WARFARIN
  11. HYDRALAZINE (APRESOLINE) [Concomitant]
  12. ELEMENTAL MAGNESIUM [Concomitant]
  13. METFORMIN [Concomitant]
     Active Substance: METFORMIN HYDROCHLORIDE
  14. ALBUTEROL (VENTOLIN HFA INHALATION AEROSOL) [Concomitant]
  15. LIPITOR [Concomitant]
     Active Substance: ATORVASTATIN CALCIUM
  16. PROCHLORPERAZINE (PROCHLORPERAZINE) [Concomitant]
     Active Substance: PROCHLORPERAZINE
  17. COUMADIN [Concomitant]
     Active Substance: WARFARIN SODIUM
  18. ALBUTEROL (VENTOLIN HFA INHALATION AEROSOL) [Concomitant]
  19. MAGNESIUM OXIDE (MAGNESIUM OXIDE) [Concomitant]
     Active Substance: MAGNESIUM OXIDE
  20. TRAZODONE [Concomitant]
     Active Substance: TRAZODONE HYDROCHLORIDE
  21. AEROSOLIZED ASPIRIN (ASPIRIN) [Concomitant]
  22. GABAPENTIN (GABAPENTIN) [Concomitant]
     Active Substance: GABAPENTIN

REACTIONS (4)
  - Drug interaction [None]
  - Hyperglycaemia [None]
  - Polydipsia [None]
  - Polyuria [None]

NARRATIVE: CASE EVENT DATE: 20160213
